FAERS Safety Report 5213882-0 (Version None)
Quarter: 2007Q1

REPORT INFORMATION
  Report Type: 
  Country: None (occurrence: None)
  Receive Date: 20070117
  Receipt Date: 20070105
  Transmission Date: 20070707
  Serious: Yes (Other)
  Sender: FDA-Public Use
  Company Number: 2006S1011458

PATIENT
  Age: 43 Year
  Sex: Male

DRUGS (3)
  1. PHENYTOIN SODIUM [Suspect]
     Indication: CONVULSION
     Dosage: 400 MG;HS;PO
     Route: 048
     Dates: start: 20060501
  2. INDOMETHACIN [Concomitant]
  3. VICODIN [Concomitant]

REACTIONS (3)
  - ARTHRITIS [None]
  - CONVULSION [None]
  - TREATMENT NONCOMPLIANCE [None]
